FAERS Safety Report 21058213 (Version 1)
Quarter: 2022Q3

REPORT INFORMATION
  Report Type: Spontaneous
  Country: US (occurrence: None)
  Receive Date: 20220708
  Receipt Date: 20220708
  Transmission Date: 20221027
  Serious: Yes (Hospitalization)
  Sender: FDA-Public Use
  Company Number: None

PATIENT
  Age: 39 Year
  Sex: Female
  Weight: 64.5 kg

DRUGS (4)
  1. CYTARABINE [Suspect]
     Active Substance: CYTARABINE
     Dates: end: 20171117
  2. ETOPOSIDE [Suspect]
     Active Substance: ETOPOSIDE
     Dates: end: 20171124
  3. ASPARAGINASE ERWINIA CHRYSANTHEMI [Suspect]
     Active Substance: ASPARAGINASE ERWINIA CHRYSANTHEMI
     Dosage: OTHER QUANTITY : 200000 UNIT;?
     Dates: end: 20171124
  4. METHOTREXATE [Suspect]
     Active Substance: METHOTREXATE
     Dates: end: 20171113

REACTIONS (19)
  - Pyrexia [None]
  - Disease progression [None]
  - Blood culture positive [None]
  - Enterobacter infection [None]
  - Rhinovirus infection [None]
  - Enterovirus infection [None]
  - Tachycardia [None]
  - Hypotension [None]
  - Nausea [None]
  - Vomiting [None]
  - Cough [None]
  - Dyspnoea [None]
  - Pleurisy [None]
  - Fatigue [None]
  - Culture positive [None]
  - Haemoglobin decreased [None]
  - White blood cell disorder [None]
  - Platelet count abnormal [None]
  - Device related infection [None]

NARRATIVE: CASE EVENT DATE: 20171126
